FAERS Safety Report 13054475 (Version 2)
Quarter: 2017Q3

REPORT INFORMATION
  Report Type: Report from Study
  Country: JP (occurrence: JP)
  Receive Date: 20161222
  Receipt Date: 20170929
  Transmission Date: 20171127
  Serious: Yes (Other)
  Sender: FDA-Public Use
  Company Number: JP-TEVA-722361ISR

PATIENT
  Age: 32 Year
  Sex: Female

DRUGS (4)
  1. ESTRANA [Concomitant]
     Active Substance: ESTRADIOL
     Indication: HORMONE REPLACEMENT THERAPY
     Dosage: 2.16 MILLIGRAM DAILY;
     Route: 062
     Dates: start: 20160830, end: 20161105
  2. PREDONINE [Concomitant]
     Active Substance: PREDNISOLONE
     Dosage: 10 MILLIGRAM DAILY;
     Route: 048
     Dates: start: 20160918, end: 20160924
  3. DACTIL [Concomitant]
     Dosage: 150 MILLIGRAM DAILY;
     Route: 048
     Dates: start: 20161012, end: 20161020
  4. LUTEUM VAGINAL SUPPOSITORY 400MG [Suspect]
     Active Substance: PROGESTERONE
     Indication: HORMONE REPLACEMENT THERAPY
     Dosage: 800 MILLIGRAM DAILY;
     Route: 067
     Dates: start: 20160918, end: 20161112

REACTIONS (5)
  - Foetal death [Unknown]
  - Genital haemorrhage [Recovering/Resolving]
  - Foetal exposure timing unspecified [Unknown]
  - Abortion threatened [Recovering/Resolving]
  - Uterine haematoma [Not Recovered/Not Resolved]

NARRATIVE: CASE EVENT DATE: 20161012
